FAERS Safety Report 4875857-0 (Version None)
Quarter: 2006Q1

REPORT INFORMATION
  Report Type: 
  Country: None (occurrence: None)
  Receive Date: 20060109
  Receipt Date: 20051228
  Transmission Date: 20060701
  Serious: Yes (Other)
  Sender: FDA-Public Use
  Company Number: JP-MERCK-0512USA03984B1

PATIENT
  Sex: Male

DRUGS (1)
  1. ALDOMET [Suspect]
     Indication: PREGNANCY INDUCED HYPERTENSION

REACTIONS (5)
  - BLOOD CREATINE PHOSPHOKINASE INCREASED [None]
  - DISSEMINATED INTRAVASCULAR COAGULATION [None]
  - INFECTION [None]
  - NEONATAL ASPHYXIA [None]
  - PREMATURE BABY [None]
